FAERS Safety Report 6415889-4 (Version None)
Quarter: 2009Q4

REPORT INFORMATION
  Report Type: 
  Country: None (occurrence: None)
  Receive Date: 20091027
  Receipt Date: 20091016
  Transmission Date: 20100525
  Serious: Yes (Hospitalization)
  Sender: FDA-Public Use
  Company Number: FR-JNJFOC-20091005925

PATIENT
  Age: 75 Year
  Sex: Female

DRUGS (9)
  1. CAELYX [Suspect]
     Dosage: CYCLE 3
     Route: 042
  2. CAELYX [Suspect]
     Dosage: CYCLE 2
     Route: 042
  3. CAELYX [Suspect]
     Indication: LYMPHANGIOSARCOMA
     Route: 042
  4. OMEPRAZOLE [Concomitant]
     Route: 065
  5. MEPRONIZINE [Concomitant]
     Route: 065
  6. TIMOPTIC [Concomitant]
     Route: 065
  7. COVERSYL [Concomitant]
     Route: 065
  8. DIAMICRON [Concomitant]
     Route: 065
  9. BENEMIDE [Concomitant]
     Route: 065

REACTIONS (2)
  - OFF LABEL USE [None]
  - TOXIC SKIN ERUPTION [None]
